FAERS Safety Report 6861426-X (Version None)
Quarter: 2010Q3

REPORT INFORMATION
  Report Type: 
  Country: None (occurrence: None)
  Receive Date: 20100720
  Receipt Date: 20100713
  Transmission Date: 20110219
  Serious: Yes (Hospitalization)
  Sender: FDA-Public Use
  Company Number: US-AMGEN-KDC419453

PATIENT
  Sex: Female

DRUGS (19)
  1. NEUPOGEN [Suspect]
     Indication: LYMPHOMA
     Route: 058
     Dates: start: 20100524
  2. RITUXIMAB [Suspect]
     Indication: LYMPHOMA
     Route: 042
     Dates: start: 20100524
  3. METHOTREXATE [Suspect]
     Indication: LYMPHOMA
     Route: 042
     Dates: start: 20100524
  4. CYTARABINE [Suspect]
     Indication: LYMPHOMA
     Route: 042
     Dates: start: 20100524
  5. LEUCOVORIN CALCIUM [Suspect]
     Indication: LYMPHOMA
     Route: 048
     Dates: start: 20100524
  6. AMBIEN [Concomitant]
  7. VALTREX [Concomitant]
  8. LEVOTHYROXINE SODIUM [Concomitant]
  9. FLUCONAZOLE [Concomitant]
  10. CIPROFLOXACIN [Concomitant]
  11. CARAFATE [Concomitant]
  12. DIPHENHYDRAMINE HYDROCHLORIDE [Concomitant]
  13. HALOPERIDOL [Concomitant]
  14. LORAZEPAM [Concomitant]
  15. LEXAPRO [Concomitant]
  16. FIORICET [Concomitant]
  17. ZOFRAN [Concomitant]
  18. PROTONIX [Concomitant]
  19. DARVON [Concomitant]

REACTIONS (5)
  - ANAEMIA [None]
  - FEBRILE NEUTROPENIA [None]
  - MENORRHAGIA [None]
  - NEUTROPHIL COUNT ABNORMAL [None]
  - THROMBOCYTOPENIA [None]
